FAERS Safety Report 10244782 (Version 2)
Quarter: 2014Q2

REPORT INFORMATION
  Report Type: Spontaneous
  Country: JP (occurrence: JP)
  Receive Date: 20140618
  Receipt Date: 20140618
  Transmission Date: 20141212
  Serious: Yes (Death, Hospitalization)
  Sender: FDA-Public Use
  Company Number: JP-BAYER-2013-148980

PATIENT
  Age: 72 Year
  Sex: Male
  Weight: 61 kg

DRUGS (5)
  1. NEXAVAR [Suspect]
     Indication: HEPATOCELLULAR CARCINOMA
     Dosage: 200 MG, BID
     Route: 048
     Dates: start: 20131119, end: 20131119
  2. MICARDIS [Concomitant]
     Dosage: DAILY DOSE 40 MG
     Route: 048
  3. NEXIUM [Concomitant]
     Dosage: DAILY DOSE 10 MG
     Route: 048
  4. CRESTOR [Concomitant]
     Dosage: DAILY DOSE 2.5 MG
     Route: 048
  5. ZYLORIC [Concomitant]
     Dosage: DAILY DOSE 200 MG
     Route: 048

REACTIONS (2)
  - Cerebral haemorrhage [Recovering/Resolving]
  - Hepatocellular carcinoma [Fatal]
